FAERS Safety Report 13213321 (Version 2)
Quarter: 2018Q1

REPORT INFORMATION
  Report Type: Spontaneous
  Country: US (occurrence: US)
  Receive Date: 20170209
  Receipt Date: 20180116
  Transmission Date: 20180508
  Serious: No
  Sender: FDA-Public Use
  Company Number: US-ALLERGAN-1675383US

PATIENT
  Age: 66 Year
  Sex: Female
  Weight: 68.27 kg

DRUGS (3)
  1. BOTOX COSMETIC [Suspect]
     Active Substance: ONABOTULINUMTOXINA
     Indication: SKIN WRINKLING
     Dosage: 14 UNITS, SINGLE
     Route: 030
     Dates: start: 20160823, end: 20160823
  2. BOTOX COSMETIC [Suspect]
     Active Substance: ONABOTULINUMTOXINA
     Indication: SKIN WRINKLING
     Dosage: 14 UNITS, SINGLE
     Route: 030
     Dates: start: 20160823, end: 20160823
  3. BOTOX COSMETIC [Suspect]
     Active Substance: ONABOTULINUMTOXINA
     Indication: SKIN WRINKLING
     Dosage: 14 UNITS, SINGLE
     Route: 030
     Dates: start: 20160823, end: 20160823

REACTIONS (22)
  - Swelling [Recovering/Resolving]
  - Pain [Unknown]
  - Diplopia [Recovering/Resolving]
  - Throat tightness [Recovering/Resolving]
  - Gingival pain [Recovering/Resolving]
  - Condition aggravated [Recovering/Resolving]
  - Insomnia [Recovering/Resolving]
  - Poisoning [Recovering/Resolving]
  - Oral mucosal blistering [Recovered/Resolved]
  - Swelling face [Recovering/Resolving]
  - Pyrexia [Recovered/Resolved]
  - Visual acuity reduced [Recovering/Resolving]
  - Migraine [Recovering/Resolving]
  - Headache [Not Recovered/Not Resolved]
  - Herpes zoster [Unknown]
  - Product preparation error [Unknown]
  - Ocular hyperaemia [Recovering/Resolving]
  - Toothache [Recovering/Resolving]
  - Constipation [Recovering/Resolving]
  - Facial pain [Recovered/Resolved]
  - Head discomfort [Recovering/Resolving]
  - Dyspnoea [Recovering/Resolving]

NARRATIVE: CASE EVENT DATE: 20160826
